FAERS Safety Report 4877455-1 (Version None)
Quarter: 2006Q1

REPORT INFORMATION
  Report Type: 
  Country: None (occurrence: None)
  Receive Date: 20060109
  Receipt Date: 20051227
  Transmission Date: 20060701
  Serious: Yes (Other)
  Sender: FDA-Public Use
  Company Number: 2005172787

PATIENT
  Sex: Male
  Weight: 54.4316 kg

DRUGS (1)
  1. BENADRYL [Suspect]
     Dosage: THE WHOLE BOX AT ONE TIME, ORAL
     Route: 048

REACTIONS (9)
  - ABNORMAL BEHAVIOUR [None]
  - DARK CIRCLES UNDER EYES [None]
  - DRUG DEPENDENCE [None]
  - DYSPHEMIA [None]
  - EATING DISORDER [None]
  - NERVOUS SYSTEM DISORDER [None]
  - SKIN DISCOLOURATION [None]
  - TREMOR [None]
  - WEIGHT DECREASED [None]
